FAERS Safety Report 9423453 (Version 1)
Quarter: 2013Q3

REPORT INFORMATION
  Report Type: Spontaneous
  Country: US (occurrence: US)
  Receive Date: 20130726
  Receipt Date: 20130726
  Transmission Date: 20140515
  Serious: No
  Sender: FDA-Public Use
  Company Number: US-GALDERMA-US12415975

PATIENT
  Age: 15 Year
  Sex: Female

DRUGS (2)
  1. ADAPALENE [Suspect]
     Route: 061
     Dates: start: 20121211, end: 20121212
  2. GLYTONE FACIAL CLEANSER [Suspect]
     Indication: THERAPEUTIC SKIN CARE TOPICAL
     Route: 061
     Dates: start: 20121211

REACTIONS (5)
  - Skin fragility [Not Recovered/Not Resolved]
  - Skin irritation [Unknown]
  - Erythema [Not Recovered/Not Resolved]
  - Pain of skin [Not Recovered/Not Resolved]
  - Dry skin [Unknown]
